FAERS Safety Report 8595743 (Version 4)
Quarter: 2013Q2

REPORT INFORMATION
  Report Type: Spontaneous
  Country: US (occurrence: US)
  Receive Date: 20120604
  Receipt Date: 20130603
  Transmission Date: 20140414
  Serious: No
  Sender: FDA-Public Use
  Company Number: US-ASTRAZENECA-2009SE26179

PATIENT
  Age: 48 Year
  Sex: Female
  Weight: 49.9 kg

DRUGS (1)
  1. SYMBICORT PMDI [Suspect]
     Dosage: 160/4.5 MCG, UNKNOWN FREQUENCY
     Route: 055

REACTIONS (7)
  - Dyspnoea [Unknown]
  - Productive cough [Unknown]
  - Bronchitis [Unknown]
  - Pulmonary congestion [Unknown]
  - Candida infection [Unknown]
  - Oral fungal infection [Unknown]
  - Drug dose omission [Unknown]
